FAERS Safety Report 19861986 (Version 1)
Quarter: 2021Q3

REPORT INFORMATION
  Report Type: Spontaneous
  Country: ES (occurrence: ES)
  Receive Date: 20210920
  Receipt Date: 20210920
  Transmission Date: 20211014
  Serious: Yes (Life-Threatening, Hospitalization)
  Sender: FDA-Public Use
  Company Number: NVSC2021ES208215

PATIENT
  Age: 82 Year
  Sex: Male

DRUGS (2)
  1. ALOPURINOL [Suspect]
     Active Substance: ALLOPURINOL
     Indication: GOUT
     Dosage: 300 MG
     Route: 048
     Dates: start: 20210723, end: 20210819
  2. AMOXICILINA + ACIDO CLAVULANICO SANDOZ [Suspect]
     Active Substance: AMOXICILLIN\CLAVULANIC ACID
     Indication: PYREXIA
     Dosage: UNK
     Route: 065
     Dates: start: 20210822, end: 20210827

REACTIONS (3)
  - Drug reaction with eosinophilia and systemic symptoms [Recovering/Resolving]
  - Pneumonitis [Recovering/Resolving]
  - Hepatitis [Recovering/Resolving]

NARRATIVE: CASE EVENT DATE: 20210827
